FAERS Safety Report 26203070 (Version 1)
Quarter: 2025Q4

REPORT INFORMATION
  Report Type: Spontaneous
  Country: US (occurrence: US)
  Receive Date: 20251226
  Receipt Date: 20251226
  Transmission Date: 20260118
  Serious: No
  Sender: CELLTRION
  Company Number: US-CELLTRION INC.-2025US036534

PATIENT

DRUGS (3)
  1. RITUXIMAB [Suspect]
     Active Substance: RITUXIMAB
     Indication: Marburg^s variant multiple sclerosis
     Dosage: 1 G (STARTED ON RITUXIMAB)
     Route: 042
  2. RITUXIMAB [Suspect]
     Active Substance: RITUXIMAB
     Dosage: SECOND RITUXIMAB DOSE TWO WEEKS LATER
     Route: 042
  3. RITUXIMAB [Suspect]
     Active Substance: RITUXIMAB
     Dosage: THIRD INFUSION SIX MONTHS LATER
     Route: 042

REACTIONS (1)
  - Drug effective for unapproved indication [Unknown]
